FAERS Safety Report 8594108-7 (Version None)
Quarter: 2012Q3

REPORT INFORMATION
  Report Type: 
  Country: None (occurrence: None)
  Receive Date: 20120814
  Receipt Date: 20120709
  Transmission Date: 20120928
  Serious: No
  Sender: FDA-Public Use
  Company Number: US-009507513-0806USA01299

PATIENT

DRUGS (3)
  1. FOSAMAX PLUS D [Suspect]
     Indication: OSTEOPOROSIS
     Dosage: 70MG/2800
     Route: 048
     Dates: start: 20070601, end: 20080516
  2. VITAMINS (UNSPECIFIED) [Concomitant]
  3. FOSAMAX PLUS D [Suspect]
     Dosage: 1 DF, QW
     Route: 048
     Dates: start: 20110601

REACTIONS (7)
  - ARTHRALGIA [None]
  - BREAST ATROPHY [None]
  - SPINAL COMPRESSION FRACTURE [None]
  - VITAMIN D DEFICIENCY [None]
  - BREAST ENLARGEMENT [None]
  - RESPIRATORY DISORDER [None]
  - BACK PAIN [None]
